FAERS Safety Report 11152672 (Version 4)
Quarter: 2015Q2

REPORT INFORMATION
  Report Type: Report from Study
  Country: KR (occurrence: KR)
  Receive Date: 20150601
  Receipt Date: 20150619
  Transmission Date: 20150821
  Serious: Yes (Hospitalization)
  Sender: FDA-Public Use
  Company Number: KR-AMGEN-KORCT2015026031

PATIENT
  Age: 73 Year
  Sex: Male
  Weight: 69 kg

DRUGS (34)
  1. CARFILZOMIB [Suspect]
     Active Substance: CARFILZOMIB
     Indication: PLASMA CELL MYELOMA
     Dosage: 36 MG/M2, PER CHEMO REGIM
     Route: 042
     Dates: start: 20141218
  2. MELPHALAN [Suspect]
     Active Substance: MELPHALAN
     Indication: PLASMA CELL MYELOMA
     Dosage: 14 MG, PER CHEMO REGIM
     Route: 048
     Dates: start: 20141218
  3. PREDNISONE. [Suspect]
     Active Substance: PREDNISONE
     Indication: PLASMA CELL MYELOMA
     Dosage: 105 MG, PER CHEMO REGIM
     Route: 048
     Dates: start: 20141218
  4. NORMAL SALINE [Concomitant]
     Active Substance: SODIUM CHLORIDE
     Dosage: 2000 UNK, UNK
     Route: 042
     Dates: start: 20150319, end: 20150320
  5. AMARYL [Concomitant]
     Active Substance: GLIMEPIRIDE
     Indication: DIABETES MELLITUS
     Dosage: 2 MG, UNK
     Route: 048
     Dates: start: 20150110
  6. SOLONDO [Concomitant]
     Active Substance: PREDNISOLONE
     Indication: DYSPNOEA
     Dosage: 5 MG, QD
     Route: 048
     Dates: start: 20150223
  7. MATRIFEN [Concomitant]
     Active Substance: FENTANYL
     Indication: BACK PAIN
     Dosage: 25 UNK, UNK
     Route: 050
     Dates: start: 20141203, end: 20150313
  8. MOTILIUM-M [Concomitant]
     Indication: PROPHYLAXIS AGAINST GASTROINTESTINAL ULCER
     Dosage: 30 G, TID
     Route: 048
     Dates: start: 20150224, end: 20150406
  9. NORMAL SALINE [Concomitant]
     Active Substance: SODIUM CHLORIDE
     Dosage: 500 UNK, UNK
     Route: 042
     Dates: start: 20150331
  10. TYLENOL [Concomitant]
     Active Substance: ACETAMINOPHEN
     Indication: BACK PAIN
     Dosage: 650 MG, AS NECESSARY
     Route: 048
     Dates: start: 20150310, end: 20150316
  11. TYLENOL ER [Concomitant]
     Active Substance: ACETAMINOPHEN
     Indication: MYALGIA
     Dosage: 650 MG, AS NECESSARY
     Route: 048
     Dates: start: 20150311, end: 20150316
  12. TRIDOL [Concomitant]
     Indication: BACK PAIN
     Dosage: 50 MG, AS NECESSARY
     Route: 042
     Dates: start: 20150330
  13. SINIL-M [Concomitant]
     Indication: PROPHYLAXIS
     Dosage: 4 OTHER, BID
     Route: 048
     Dates: start: 20150311
  14. HARNAL [Concomitant]
     Active Substance: TAMSULOSIN HYDROCHLORIDE
     Indication: BENIGN PROSTATIC HYPERPLASIA
     Dosage: 0.2 MG, UNK
     Route: 048
     Dates: start: 20150110
  15. JURNISTA [Concomitant]
     Active Substance: HYDROMORPHONE HYDROCHLORIDE
     Indication: BACK PAIN
     Dosage: 4 MG, UNK
     Route: 048
     Dates: start: 20150223
  16. ZYLORIC [Concomitant]
     Active Substance: ALLOPURINOL
     Indication: PROPHYLAXIS
     Dosage: 300 MG, UNK
     Route: 048
     Dates: start: 20150309, end: 20150430
  17. PANORIN [Concomitant]
     Indication: PLASMA CELL MYELOMA
     Dosage: 90 MG, QD
     Route: 042
     Dates: start: 20150331, end: 20150428
  18. ADALAT [Concomitant]
     Active Substance: NIFEDIPINE
     Indication: HYPERTENSION
     Dosage: 60 MG, UNK
     Route: 048
     Dates: start: 20150122
  19. CIMET                              /00397401/ [Concomitant]
     Indication: PROPHYLAXIS AGAINST GASTROINTESTINAL ULCER
     Dosage: 600 MG, BID
     Route: 048
     Dates: start: 20150223
  20. BICARBONATE SODIUM [Concomitant]
     Indication: BLOOD CALCIUM
     Dosage: 40 ML, UNK
     Route: 042
     Dates: start: 20150310, end: 20150311
  21. FLUCONAZOLE. [Concomitant]
     Active Substance: FLUCONAZOLE
     Indication: ANTIBIOTIC PROPHYLAXIS
     Dosage: 100 MG, BID
     Route: 048
     Dates: start: 20150310, end: 20150324
  22. DUPHALAC [Concomitant]
     Active Substance: LACTULOSE
     Indication: CONSTIPATION
     Dosage: 30 ML, TID
     Route: 048
     Dates: start: 20150223, end: 20150511
  23. NORMAL SALINE [Concomitant]
     Active Substance: SODIUM CHLORIDE
     Indication: PROPHYLAXIS
     Dosage: 500 ML, UNK
     Route: 042
     Dates: start: 20150309, end: 20150309
  24. NORMAL SALINE [Concomitant]
     Active Substance: SODIUM CHLORIDE
     Indication: NUTRITIONAL SUPPLEMENTATION
     Dosage: 1000 ML, UNK
     Route: 042
     Dates: start: 20150310, end: 20150311
  25. NORMAL SALINE [Concomitant]
     Active Substance: SODIUM CHLORIDE
     Dosage: 1000 UNK, UNK
     Route: 042
     Dates: start: 20150317, end: 20150318
  26. ZANTAC [Concomitant]
     Active Substance: RANITIDINE HYDROCHLORIDE
     Indication: PROPHYLAXIS AGAINST GASTROINTESTINAL ULCER
     Dosage: 300 MG, UNK
     Route: 048
     Dates: start: 20150310, end: 20150312
  27. CODEINE [Concomitant]
     Active Substance: CODEINE
     Indication: BENIGN PROSTATIC HYPERPLASIA
     Dosage: 60 MG, UNK
     Route: 048
     Dates: start: 20150110
  28. LASIX [Concomitant]
     Active Substance: FUROSEMIDE
     Indication: DYSPNOEA
     Dosage: 20 MG, BID
     Route: 048
     Dates: start: 20150130, end: 20150522
  29. AMITRIPTYLINE [Concomitant]
     Active Substance: AMITRIPTYLINE
     Indication: BACK PAIN
     Dosage: 10 MG, UNK
     Route: 048
     Dates: start: 20150309
  30. SEPTRIN [Concomitant]
     Active Substance: SULFAMETHOXAZOLE\TRIMETHOPRIM
     Indication: ANTIBIOTIC PROPHYLAXIS
     Dosage: 2 UNIT, BID
     Route: 048
     Dates: start: 20150310, end: 20150324
  31. VACROVIR                           /00587301/ [Concomitant]
     Indication: ANTIVIRAL PROPHYLAXIS
     Dosage: 500 MG, BID
     Route: 048
     Dates: start: 20141203
  32. AVODART [Concomitant]
     Active Substance: DUTASTERIDE
     Indication: BENIGN PROSTATIC HYPERPLASIA
     Dosage: 0.5 MG, UNK
     Route: 048
     Dates: start: 20150110
  33. NEURONTIN [Concomitant]
     Active Substance: GABAPENTIN
     Indication: BACK PAIN
     Dosage: 900 MG, UNK
     Route: 048
     Dates: start: 20150120
  34. ADCAL                              /00056901/ [Concomitant]
     Active Substance: CARBAZOCHROME
     Indication: PROPHYLAXIS
     Dosage: 4 UNK, BID
     Route: 048
     Dates: start: 20150317, end: 20150326

REACTIONS (6)
  - Pneumonia [Recovered/Resolved]
  - Pulmonary fibrosis [Not Recovered/Not Resolved]
  - Pulmonary fibrosis [Recovered/Resolved]
  - Pneumonia [Recovered/Resolved]
  - Pulmonary fibrosis [Not Recovered/Not Resolved]
  - Pulmonary fibrosis [Recovered/Resolved]

NARRATIVE: CASE EVENT DATE: 20150317
